FAERS Safety Report 7628009-5 (Version None)
Quarter: 2011Q3

REPORT INFORMATION
  Report Type: 
  Country: None (occurrence: None)
  Receive Date: 20110722
  Receipt Date: 20110713
  Transmission Date: 20111222
  Serious: Yes (Hospitalization)
  Sender: FDA-Public Use
  Company Number: US-BIOGENIDEC-2011BI026433

PATIENT
  Age: 27 Year
  Sex: Female

DRUGS (4)
  1. AVONEX [Suspect]
     Indication: MULTIPLE SCLEROSIS
     Route: 030
     Dates: end: 20090101
  2. AVONEX [Suspect]
     Route: 030
     Dates: start: 20010101
  3. BACLOFEN [Concomitant]
  4. NEURONTIN [Concomitant]

REACTIONS (6)
  - SCIATICA [None]
  - MULTIPLE SCLEROSIS RELAPSE [None]
  - INTERVERTEBRAL DISC PROTRUSION [None]
  - ADVERSE EVENT [None]
  - HYPOTHYROIDISM [None]
  - CENTRAL NERVOUS SYSTEM LESION [None]
